FAERS Safety Report 6968001-7 (Version None)
Quarter: 2010Q3

REPORT INFORMATION
  Report Type: 
  Country: None (occurrence: None)
  Receive Date: 20100907
  Receipt Date: 20100825
  Transmission Date: 20110219
  Serious: Yes (Other)
  Sender: FDA-Public Use
  Company Number: A0879140A

PATIENT
  Sex: Male

DRUGS (1)
  1. AVANDIA [Suspect]
     Dosage: 4MG PER DAY
     Dates: start: 20030401, end: 20070101

REACTIONS (3)
  - ANGINA PECTORIS [None]
  - EYE OPERATION [None]
  - MACULAR OEDEMA [None]
